FAERS Safety Report 7064927-7 (Version None)
Quarter: 2010Q4

REPORT INFORMATION
  Report Type: 
  Country: None (occurrence: None)
  Receive Date: 20101027
  Receipt Date: 20101021
  Transmission Date: 20110411
  Serious: Yes (Other)
  Sender: FDA-Public Use
  Company Number: US-PFIZER INC-2010135839

PATIENT
  Sex: Female
  Weight: 61.678 kg

DRUGS (4)
  1. SUTENT [Suspect]
     Indication: CARCINOID TUMOUR
     Dosage: 50 MG, DAILY
     Route: 048
     Dates: start: 20100906, end: 20100919
  2. VERAPAMIL HCL [Suspect]
     Indication: BLOOD PRESSURE ABNORMAL
     Dosage: UNK
     Dates: start: 20100101, end: 20100919
  3. LEVOTHYROXINE [Concomitant]
     Indication: THYROID DISORDER
     Dosage: UNK
  4. SANDOSTATIN [Concomitant]
     Indication: CARCINOID TUMOUR
     Dosage: UNK

REACTIONS (1)
  - HYPOTENSION [None]
